FAERS Safety Report 5138422-6 (Version None)
Quarter: 2006Q4

REPORT INFORMATION
  Report Type: 
  Country: None (occurrence: None)
  Receive Date: 20061030
  Receipt Date: 20060222
  Transmission Date: 20070319
  Serious: No
  Sender: FDA-Public Use
  Company Number: US-GLAXOSMITHKLINE-A0594781A

PATIENT
  Sex: Female

DRUGS (7)
  1. ADVAIR HFA [Suspect]
     Indication: ASTHMA
     Dosage: 1PUFF PER DAY
     Route: 055
  2. ALBUTEROL [Concomitant]
  3. QVAR 40 [Concomitant]
  4. PRILOSEC [Concomitant]
  5. CLONIDINE [Concomitant]
  6. CLARITIN [Concomitant]
  7. NASONEX [Concomitant]

REACTIONS (2)
  - CHEST PAIN [None]
  - WHEEZING [None]
